FAERS Safety Report 17585839 (Version 4)
Quarter: 2021Q2

REPORT INFORMATION
  Report Type: Report from Study
  Country: AT (occurrence: AT)
  Receive Date: 20200326
  Receipt Date: 20210412
  Transmission Date: 20210716
  Serious: Yes (Hospitalization)
  Sender: FDA-Public Use
  Company Number: AT-TAKEDA-2020TUS015770

PATIENT
  Sex: Female

DRUGS (6)
  1. COLIDIMIN [Concomitant]
     Active Substance: RIFAXIMIN
     Dosage: 400 MILLIGRAM
  2. METAGELAN [Concomitant]
     Active Substance: DIPYRONE
     Dosage: 500 MILLIGRAM
  3. PARACETAMOL [Concomitant]
     Active Substance: ACETAMINOPHEN
     Dosage: 500 MILLIGRAM
  4. MESAGRAN [Concomitant]
     Active Substance: MESALAMINE
     Dosage: 3000 MILLIGRAM
  5. VEDOLIZUMAB [Suspect]
     Active Substance: VEDOLIZUMAB
     Indication: INFLAMMATORY BOWEL DISEASE
     Dosage: UNK
     Route: 042
     Dates: start: 20180328
  6. ENTEROBENE [Concomitant]
     Dosage: 2 MILLIGRAM

REACTIONS (2)
  - Flatulence [Not Recovered/Not Resolved]
  - Osteoarthritis [Recovered/Resolved]

NARRATIVE: CASE EVENT DATE: 2019
